FAERS Safety Report 24608325 (Version 1)
Quarter: 2024Q4

REPORT INFORMATION
  Report Type: Report from Study
  Country: US (occurrence: US)
  Receive Date: 20241112
  Receipt Date: 20241112
  Transmission Date: 20250114
  Serious: Yes (Other)
  Sender: BAYER HEALTHCARE PHARMACEUTICALS INC.
  Company Number: US-BAYER-2024A155056

PATIENT
  Age: 62 Year
  Sex: Female
  Weight: 92.971 kg

DRUGS (20)
  1. ADEMPAS [Suspect]
     Active Substance: RIOCIGUAT
     Indication: Pulmonary arterial hypertension
     Dosage: UNK
  2. ADEMPAS [Suspect]
     Active Substance: RIOCIGUAT
     Indication: Pulmonary arterial hypertension
     Dosage: 0.5 MG, TID
     Route: 048
     Dates: start: 20241003
  3. AMLODIPINE BESYLATE [Concomitant]
     Active Substance: AMLODIPINE BESYLATE
  4. DULOXETINE HYDROCHLORIDE [Concomitant]
     Active Substance: DULOXETINE HYDROCHLORIDE
  5. CYMBALTA [Concomitant]
     Active Substance: DULOXETINE HYDROCHLORIDE
  6. ROSUVASTATIN CALCIUM [Concomitant]
     Active Substance: ROSUVASTATIN CALCIUM
  7. TADALAFIL [Concomitant]
     Active Substance: TADALAFIL
  8. BUPROPION [Concomitant]
     Active Substance: BUPROPION
  9. TRELEGY ELLIPTA [Concomitant]
     Active Substance: FLUTICASONE FUROATE\UMECLIDINIUM BROMIDE\VILANTEROL TRIFENATATE
  10. ALBUTEROL SULFATE [Concomitant]
     Active Substance: ALBUTEROL SULFATE
  11. TIZANIDINE HYDROCHLORIDE [Concomitant]
     Active Substance: TIZANIDINE HYDROCHLORIDE
  12. ESTRADIOL [Concomitant]
     Active Substance: ESTRADIOL
  13. TUMS [Concomitant]
     Active Substance: CALCIUM CARBONATE
  14. VITAMIN D3 [Concomitant]
     Active Substance: CHOLECALCIFEROL
  15. OXYGEN [Concomitant]
     Active Substance: OXYGEN
  16. CARVEDILOL [Concomitant]
     Active Substance: CARVEDILOL
  17. NORVASC [Concomitant]
     Active Substance: AMLODIPINE BESYLATE
  18. ENTRESTO [Concomitant]
     Active Substance: SACUBITRIL\VALSARTAN
  19. ASPIRIN [Concomitant]
     Active Substance: ASPIRIN
  20. DEXILANT [Concomitant]
     Active Substance: DEXLANSOPRAZOLE

REACTIONS (4)
  - Scab [None]
  - Nasal dryness [Not Recovered/Not Resolved]
  - Rhinalgia [None]
  - Oropharyngeal pain [Not Recovered/Not Resolved]
